APPROVED DRUG PRODUCT: CANDEX
Active Ingredient: NYSTATIN
Strength: 100,000 UNITS/ML
Dosage Form/Route: LOTION;TOPICAL
Application: N050233 | Product #001
Applicant: BAYER PHARMACEUTICALS CORP
Approved: Approved Prior to Jan 1, 1982 | RLD: No | RS: No | Type: DISCN